FAERS Safety Report 8386241-X (Version None)
Quarter: 2012Q2

REPORT INFORMATION
  Report Type: 
  Country: None (occurrence: None)
  Receive Date: 20120525
  Receipt Date: 20120521
  Transmission Date: 20120825
  Serious: Yes (Other)
  Sender: FDA-Public Use
  Company Number: US-PFIZER INC-2011156352

PATIENT
  Sex: Female
  Weight: 56.689 kg

DRUGS (2)
  1. TOPROL-XL [Concomitant]
     Indication: CARDIAC DISORDER
     Dosage: UNK, 1X/DAY
  2. PREMARIN [Suspect]
     Indication: VULVOVAGINAL DISCOMFORT
     Dosage: 0.625 MG, 2X/DAY
     Route: 067
     Dates: end: 20120501

REACTIONS (8)
  - ACTIVITIES OF DAILY LIVING IMPAIRED [None]
  - DRUG INEFFECTIVE [None]
  - HYPERSENSITIVITY [None]
  - SPINAL FRACTURE [None]
  - HEARING IMPAIRED [None]
  - BODY HEIGHT DECREASED [None]
  - DRUG EFFECT DECREASED [None]
  - BLOOD TRIGLYCERIDES INCREASED [None]
